FAERS Safety Report 5916533-2 (Version None)
Quarter: 2008Q4

REPORT INFORMATION
  Report Type: 
  Country: None (occurrence: None)
  Receive Date: 20081013
  Receipt Date: 20081003
  Transmission Date: 20090506
  Serious: Yes (Life-Threatening)
  Sender: FDA-Public Use
  Company Number: B0536592A

PATIENT
  Age: 4 Month
  Sex: Female
  Weight: 5.9 kg

DRUGS (4)
  1. ZOPHREN [Suspect]
     Indication: VOMITING
     Route: 042
     Dates: start: 20080813, end: 20080814
  2. VINCRISTINE [Suspect]
     Indication: RETINOBLASTOMA
     Dosage: .2MG SINGLE DOSE
     Route: 042
     Dates: start: 20080813, end: 20080813
  3. PLITICAN [Concomitant]
     Indication: VOMITING
     Route: 065
     Dates: start: 20080814
  4. ENDOXAN [Concomitant]
     Indication: RETINOBLASTOMA
     Dosage: 40MG SINGLE DOSE
     Route: 065
     Dates: start: 20080813, end: 20080813

REACTIONS (10)
  - APNOEA [None]
  - CONVULSION [None]
  - DEPRESSED LEVEL OF CONSCIOUSNESS [None]
  - DYSPNOEA [None]
  - EYE DISORDER [None]
  - INTERCOSTAL RETRACTION [None]
  - RESPIRATORY ARREST [None]
  - SOMNOLENCE [None]
  - UNRESPONSIVE TO STIMULI [None]
  - WHEEZING [None]
